FAERS Safety Report 25787437 (Version 4)
Quarter: 2025Q4

REPORT INFORMATION
  Report Type: Spontaneous
  Country: US (occurrence: US)
  Receive Date: 20250910
  Receipt Date: 20251202
  Transmission Date: 20260117
  Serious: No
  Sender: PFIZER
  Company Number: US-PFIZER INC-202500176335

PATIENT
  Age: 14 Year
  Sex: Male
  Weight: 41.95 kg

DRUGS (1)
  1. GENOTROPIN [Suspect]
     Active Substance: SOMATROPIN
     Indication: Growth hormone deficiency
     Dosage: 1.4MG EVERY DAY INJECTION
     Dates: start: 20250501, end: 20250907

REACTIONS (2)
  - Drug dose omission by device [Unknown]
  - Device material issue [Unknown]

NARRATIVE: CASE EVENT DATE: 20250903
